FAERS Safety Report 6932433-3 (Version None)
Quarter: 2010Q3

REPORT INFORMATION
  Report Type: 
  Country: None (occurrence: None)
  Receive Date: 20100819
  Receipt Date: 20100810
  Transmission Date: 20110219
  Serious: Yes (Other)
  Sender: FDA-Public Use
  Company Number: DE-JNJFOC-20100805590

PATIENT
  Age: 3 Year
  Sex: Female

DRUGS (9)
  1. TOPAMAX [Suspect]
     Indication: STATUS EPILEPTICUS
     Route: 065
  2. VALPROIC ACID [Suspect]
     Indication: STATUS EPILEPTICUS
     Route: 065
  3. CLOBAZAM [Suspect]
     Indication: STATUS EPILEPTICUS
     Route: 065
  4. PYRIDOXINE HCL [Suspect]
     Indication: STATUS EPILEPTICUS
     Route: 065
  5. SULTHIAME [Suspect]
     Indication: STATUS EPILEPTICUS
     Route: 065
  6. PHENOBARBITAL [Suspect]
     Indication: STATUS EPILEPTICUS
     Route: 065
  7. ADRENOCORTICOTROPHIC HORMONE [Suspect]
     Indication: STATUS EPILEPTICUS
     Route: 065
  8. VIGABATRIN [Suspect]
     Indication: STATUS EPILEPTICUS
     Route: 065
  9. LEVETIRACETAM [Suspect]
     Indication: STATUS EPILEPTICUS
     Route: 065

REACTIONS (1)
  - DRUG RESISTANCE [None]
